FAERS Safety Report 7238743-7 (Version None)
Quarter: 2011Q1

REPORT INFORMATION
  Report Type: 
  Country: None (occurrence: None)
  Receive Date: 20110121
  Receipt Date: 20110117
  Transmission Date: 20110831
  Serious: Yes (Death)
  Sender: FDA-Public Use
  Company Number: RS-JNJFOC-20110104709

PATIENT
  Sex: Male

DRUGS (11)
  1. RANISAN [Concomitant]
     Route: 065
  2. TOPAMAX [Suspect]
     Indication: EPILEPSY
     Route: 048
  3. INSULIN [Concomitant]
     Route: 065
  4. PRILENAP [Concomitant]
     Route: 065
  5. DILACOR XR [Concomitant]
     Route: 065
  6. BROMAZEPAM [Concomitant]
     Route: 065
  7. PRESOLOL [Concomitant]
     Route: 065
  8. HEMOPRES [Concomitant]
     Route: 065
  9. MONIZOL [Concomitant]
     Route: 065
  10. DUROFILIN [Concomitant]
     Route: 065
  11. PLAVIX [Concomitant]
     Indication: PROPHYLAXIS
     Route: 065

REACTIONS (3)
  - ABNORMAL BEHAVIOUR [None]
  - ANGIOPATHY [None]
  - PSYCHOMOTOR HYPERACTIVITY [None]
